FAERS Safety Report 9403296 (Version 4)
Quarter: 2013Q4

REPORT INFORMATION
  Report Type: Spontaneous
  Country: FR (occurrence: FR)
  Receive Date: 20130716
  Receipt Date: 20131025
  Transmission Date: 20140711
  Serious: Yes (Life-Threatening, Hospitalization)
  Sender: FDA-Public Use
  Company Number: FR-PFIZER INC-2013206967

PATIENT
  Age: 39 Year
  Sex: Female

DRUGS (9)
  1. XANAX [Suspect]
     Dosage: 0.25 MG, 1X/DAY
     Route: 048
  2. LEELOO [Suspect]
     Indication: CONTRACEPTION
     Dosage: 1 DF, DAILY
     Route: 048
     Dates: end: 2013
  3. SYNEDIL [Suspect]
     Dosage: 100 MG, DAILY(2 CAPSULES OF 50 MG DAILY)
     Route: 048
     Dates: end: 2013
  4. ESOMEPRAZOLE [Suspect]
     Dosage: UNK
     Route: 048
  5. LEGALON [Suspect]
     Dosage: 70 MG, UNK
     Route: 048
  6. SPIFEN [Suspect]
     Dosage: 1200 MG, DAILY (3 TABLETS DAILY OF 400 MG)
     Route: 048
  7. TRANXENE [Concomitant]
     Dosage: 5 MG, 2X/DAY
  8. OFLOCET [Concomitant]
     Dosage: 200 MG, UNK
     Dates: start: 20130627
  9. TRIMEBUTINE [Concomitant]
     Dosage: 200 MG, 3X/DAY

REACTIONS (2)
  - Pulmonary embolism [Unknown]
  - Pelvic venous thrombosis [Unknown]
